FAERS Safety Report 4297287-5 (Version None)
Quarter: 2004Q1

REPORT INFORMATION
  Report Type: 
  Country: None (occurrence: None)
  Receive Date: 20040213
  Receipt Date: 20040204
  Transmission Date: 20041129
  Serious: Yes (Disabling)
  Sender: FDA-Public Use
  Company Number: 2003168795JP

PATIENT
  Age: 3 Year
  Sex: Male

DRUGS (7)
  1. CLINDAMYCIN HCL [Suspect]
     Indication: PNEUMONIA MYCOPLASMAL
     Dosage: 270 MG QD IV DRIP
     Route: 041
     Dates: start: 20030621, end: 20030628
  2. FLUMARIN (FLOMOXEF SODIUM) [Suspect]
     Indication: PNEUMONIA
     Dosage: 200 MG QID IV
     Route: 042
     Dates: start: 20030608, end: 20030628
  3. CLARITHROMYCIN [Suspect]
     Indication: PNEUMONIA MYCOPLASMAL
     Dosage: 40 MG TID ORAL
     Route: 048
     Dates: start: 20030628, end: 20030703
  4. MINOMYCIN (MINOCYCLINE HYDROCHLORIDE) [Suspect]
     Indication: PNEUMONIA MYCOPLASMAL
     Dosage: 20 MG BID IV DRIP
     Route: 041
     Dates: start: 20030617, end: 20030621
  5. SOLU-MEDROL [Concomitant]
  6. SOLU-CORTEF [Concomitant]
  7. ROKITAMYCIN (ROKITAMYCIN) [Concomitant]

REACTIONS (5)
  - ALKALOSIS HYPOKALAEMIC [None]
  - ATELECTASIS [None]
  - EOSINOPHILIC PNEUMONIA [None]
  - HEPATIC FUNCTION ABNORMAL [None]
  - INTERSTITIAL LUNG DISEASE [None]
